APPROVED DRUG PRODUCT: DIATRIZOATE MEGLUMINE AND DIATRIZOATE SODIUM
Active Ingredient: DIATRIZOATE MEGLUMINE; DIATRIZOATE SODIUM
Strength: 66%;10%
Dosage Form/Route: SOLUTION;ORAL, RECTAL
Application: A214201 | Product #001 | TE Code: AA
Applicant: ANDA REPOSITORY LLC
Approved: Jun 27, 2022 | RLD: No | RS: No | Type: RX